FAERS Safety Report 6010954-8 (Version None)
Quarter: 2008Q4

REPORT INFORMATION
  Report Type: 
  Country: None (occurrence: None)
  Receive Date: 20081218
  Receipt Date: 20081217
  Transmission Date: 20090506
  Serious: Yes (Life-Threatening, Other)
  Sender: FDA-Public Use
  Company Number: A0760740A

PATIENT
  Age: 65 Year
  Sex: Male

DRUGS (1)
  1. ARIXTRA [Suspect]
     Dosage: 2.5MG PER DAY
     Route: 058

REACTIONS (2)
  - COAGULATION TIME PROLONGED [None]
  - OPERATIVE HAEMORRHAGE [None]
